FAERS Safety Report 23207873 (Version 2)
Quarter: 2023Q4

REPORT INFORMATION
  Report Type: Spontaneous
  Country: CN (occurrence: CN)
  Receive Date: 20231121
  Receipt Date: 20231124
  Transmission Date: 20240109
  Serious: Yes (Hospitalization)
  Sender: FDA-Public Use
  Company Number: CN-002147023-NVSC2023CN243435

PATIENT
  Age: 51 Year
  Sex: Female
  Weight: 65 kg

DRUGS (11)
  1. SACUBITRIL\VALSARTAN [Suspect]
     Active Substance: SACUBITRIL\VALSARTAN
     Indication: Cardiac failure
     Dosage: 100 MG, QD
     Route: 048
     Dates: start: 20231107, end: 20231109
  2. CANAGLIFLOZIN [Suspect]
     Active Substance: CANAGLIFLOZIN
     Indication: Diuretic therapy
     Dosage: 100 MG, QD
     Route: 048
     Dates: start: 20231107, end: 20231113
  3. FUROSEMIDE [Suspect]
     Active Substance: FUROSEMIDE
     Indication: Diuretic therapy
     Dosage: 60 MG, QD (PUMP INJECTION)
     Route: 065
     Dates: start: 20231107, end: 20231109
  4. FUROSEMIDE [Suspect]
     Active Substance: FUROSEMIDE
     Indication: Erectile dysfunction
  5. CEFOPERAZONE SODIUM\SULBACTAM SODIUM [Concomitant]
     Active Substance: CEFOPERAZONE SODIUM\SULBACTAM SODIUM
     Indication: Anti-infective therapy
     Dosage: 3 G, BID
     Route: 042
     Dates: start: 20231108, end: 20231109
  6. NITROGLYCERIN [Concomitant]
     Active Substance: NITROGLYCERIN
     Indication: Cardiac failure
     Dosage: 5 MG, QD (PUMP INJECTION)
     Route: 065
     Dates: start: 20231107, end: 20231109
  7. SPIRONOLACTONE [Concomitant]
     Active Substance: SPIRONOLACTONE
     Indication: Diuretic therapy
     Dosage: 20 MG, QD
     Route: 048
     Dates: start: 20231107, end: 20231109
  8. SODIUM CHLORIDE [Concomitant]
     Active Substance: SODIUM CHLORIDE
     Indication: Product used for unknown indication
     Dosage: 46 ML
     Route: 065
  9. SODIUM CHLORIDE [Concomitant]
     Active Substance: SODIUM CHLORIDE
     Dosage: 1 DOSAGE FORM (500 ML)
     Route: 042
  10. AMINOPHYLLINE [Concomitant]
     Active Substance: AMINOPHYLLINE
     Indication: Product used for unknown indication
     Dosage: 0.25 MG, QD
     Route: 042
  11. DOPAMINE HYDROCHLORIDE [Concomitant]
     Active Substance: DOPAMINE HYDROCHLORIDE
     Indication: Product used for unknown indication
     Dosage: UNK (60MG PLUS 5 PERCENT GLUCOSE INJECTION 30ML MICROPUMP WAS ADMINISTERED 3ML/HOUR)
     Route: 065
     Dates: start: 20231110

REACTIONS (9)
  - Hypotension [Not Recovered/Not Resolved]
  - Hypokalaemia [Recovered/Resolved]
  - Oliguria [Unknown]
  - Defaecation disorder [Unknown]
  - Volume blood decreased [Unknown]
  - Feeling abnormal [Unknown]
  - Respiratory rate increased [Unknown]
  - Symptom recurrence [Unknown]
  - Decreased immune responsiveness [Unknown]

NARRATIVE: CASE EVENT DATE: 20231109
